FAERS Safety Report 12441733 (Version 35)
Quarter: 2019Q1

REPORT INFORMATION
  Report Type: Report from Study
  Country: JP (occurrence: JP)
  Receive Date: 20160607
  Receipt Date: 20190130
  Transmission Date: 20190417
  Serious: Yes (Hospitalization, Other)
  Sender: FDA-Public Use
  Company Number: JP-AMGEN-JPNCT2016072073

PATIENT
  Age: 62 Year
  Sex: Female
  Weight: 32 kg

DRUGS (34)
  1. PANITUMUMAB [Suspect]
     Active Substance: PANITUMUMAB
     Dosage: 3.6 MG/KG, Q2WK
     Route: 041
     Dates: start: 20170310, end: 20170310
  2. 5-FU [Suspect]
     Active Substance: FLUOROURACIL
     Dosage: 1600 MG/M2, Q2WK
     Route: 041
     Dates: start: 20161014, end: 20170203
  3. PANITUMUMAB [Suspect]
     Active Substance: PANITUMUMAB
     Dosage: 3.6 MG/KG, Q2WK
     Route: 041
     Dates: start: 20161118, end: 20161216
  4. OXALIPLATIN. [Suspect]
     Active Substance: OXALIPLATIN
     Dosage: 50 MG/M2, Q2WK
     Route: 041
     Dates: start: 20160819, end: 20160902
  5. CALCIUM LEVOFOLINATE [Suspect]
     Active Substance: LEVOLEUCOVORIN CALCIUM
     Indication: RECTOSIGMOID CANCER
     Dosage: 250 MG, Q2WK
     Route: 041
     Dates: start: 20160422, end: 20160506
  6. BENZALIN (NITRAZEPAM) [Concomitant]
     Active Substance: NITRAZEPAM
     Indication: PROPHYLAXIS
     Dosage: 5 MG, QD
     Route: 048
     Dates: start: 20170106
  7. LYRICA [Concomitant]
     Active Substance: PREGABALIN
     Indication: NEUROPATHY PERIPHERAL
     Dosage: 75 MG, BID
     Route: 048
     Dates: start: 20170106
  8. PANITUMUMAB [Suspect]
     Active Substance: PANITUMUMAB
     Dosage: 4.8 MG/KG, Q2WK
     Route: 041
     Dates: start: 20160819, end: 20160902
  9. 5-FU [Suspect]
     Active Substance: FLUOROURACIL
     Indication: RECTOSIGMOID CANCER
     Dosage: 500 MG, Q2WK
     Route: 040
     Dates: start: 20160422, end: 20160506
  10. 5-FU [Suspect]
     Active Substance: FLUOROURACIL
     Dosage: 2400 MG, Q2WK
     Route: 041
     Dates: start: 20160527, end: 20160729
  11. 5-FU [Suspect]
     Active Substance: FLUOROURACIL
     Dosage: 1600 MG/M2, Q2WK
     Route: 041
     Dates: start: 20160819, end: 20160902
  12. MAGMITT [Concomitant]
     Active Substance: MAGNESIUM OXIDE
     Indication: CONSTIPATION PROPHYLAXIS
     Dosage: 330 MG, TID
     Route: 048
     Dates: start: 20170106
  13. PANITUMUMAB [Suspect]
     Active Substance: PANITUMUMAB
     Indication: RECTOSIGMOID CANCER
     Dosage: 250 MG, Q2WK
     Route: 041
     Dates: start: 20160422, end: 20160624
  14. 5-FU [Suspect]
     Active Substance: FLUOROURACIL
     Dosage: 1600 MG/M2, Q2WK
     Route: 041
     Dates: start: 20170310, end: 20170901
  15. CALCIUM LEVOFOLINATE [Suspect]
     Active Substance: LEVOLEUCOVORIN CALCIUM
     Dosage: 240 MG, Q2WK
     Route: 041
     Dates: start: 20160527, end: 20160729
  16. PANITUMUMAB [Suspect]
     Active Substance: PANITUMUMAB
     Dosage: 3.6 MG/KG, Q2WK
     Route: 041
     Dates: start: 20170407, end: 20170901
  17. OXALIPLATIN. [Suspect]
     Active Substance: OXALIPLATIN
     Indication: RECTOSIGMOID CANCER
     Dosage: 110 MG, Q2WK
     Route: 041
     Dates: start: 20160422, end: 20160506
  18. OXALIPLATIN. [Suspect]
     Active Substance: OXALIPLATIN
     Dosage: 70 MG, Q2WK
     Route: 041
     Dates: start: 20160527, end: 20160729
  19. 5-FU [Suspect]
     Active Substance: FLUOROURACIL
     Dosage: 240 MG, Q2WK
     Route: 040
     Dates: start: 20160527, end: 20160729
  20. 5-FU [Suspect]
     Active Substance: FLUOROURACIL
     Dosage: UNK
     Route: 041
     Dates: start: 20170919, end: 20180206
  21. CALCIUM LEVOFOLINATE [Suspect]
     Active Substance: LEVOLEUCOVORIN CALCIUM
     Dosage: UNK UNK, Q2WK
     Route: 041
     Dates: start: 20160819, end: 20160902
  22. MYSLEE [Concomitant]
     Active Substance: ZOLPIDEM TARTRATE
     Indication: PROPHYLAXIS
     Dosage: 10 MG, QD
     Route: 048
     Dates: start: 20160520
  23. PANITUMUMAB [Suspect]
     Active Substance: PANITUMUMAB
     Dosage: 170 MG, Q2WK
     Route: 041
     Dates: start: 20160715, end: 20160729
  24. 5-FU [Suspect]
     Active Substance: FLUOROURACIL
     Dosage: UNK
     Route: 040
     Dates: start: 20170919, end: 20180206
  25. MINOCYCLINE HYDROCHLORIDE. [Concomitant]
     Active Substance: MINOCYCLINE HYDROCHLORIDE
     Indication: PROPHYLAXIS
     Dosage: 100 MG, BID
     Route: 048
     Dates: start: 20160708
  26. CELECOX [Concomitant]
     Active Substance: CELECOXIB
     Indication: PAIN PROPHYLAXIS
     Dosage: 100 MG, TID
     Route: 048
     Dates: start: 20170120
  27. OXINORM [Concomitant]
     Indication: PAIN PROPHYLAXIS
     Dosage: 2.5 G, UNK
     Route: 048
     Dates: start: 20160317
  28. METHYCOBAL [Concomitant]
     Active Substance: METHYLCOBALAMIN
     Indication: NEUROPATHY PERIPHERAL
     Dosage: 500 UG, TID
     Route: 048
     Dates: start: 20170106
  29. 5-FU [Suspect]
     Active Substance: FLUOROURACIL
     Dosage: 3250 MG, Q2WK
     Route: 041
     Dates: start: 20160422, end: 20160506
  30. CALCIUM LEVOFOLINATE [Suspect]
     Active Substance: LEVOLEUCOVORIN CALCIUM
     Dosage: UNK UNK, Q2WK
     Route: 041
     Dates: start: 20161014, end: 20170203
  31. CALCIUM LEVOFOLINATE [Suspect]
     Active Substance: LEVOLEUCOVORIN CALCIUM
     Dosage: UNK UNK, Q2WK
     Route: 041
     Dates: start: 20170310, end: 20170901
  32. CALCIUM LEVOFOLINATE [Suspect]
     Active Substance: LEVOLEUCOVORIN CALCIUM
     Dosage: UNK UNK, Q2WK
     Route: 041
     Dates: start: 20170919, end: 20180206
  33. PANITUMUMAB [Suspect]
     Active Substance: PANITUMUMAB
     Dosage: 3.6 MG/KG, Q2WK
     Route: 041
     Dates: start: 20170203, end: 20170203
  34. GLUCONSAN K [Concomitant]
     Active Substance: POTASSIUM GLUCONATE
     Indication: MINERAL SUPPLEMENTATION
     Dosage: 2 G, TID
     Route: 048
     Dates: start: 20160729

REACTIONS (27)
  - Peripheral sensory neuropathy [Not Recovered/Not Resolved]
  - Alopecia [Recovered/Resolved]
  - Hypokalaemia [Unknown]
  - Pelvic abscess [Recovered/Resolved]
  - Nausea [Recovered/Resolved]
  - Dysaesthesia [Recovered/Resolved]
  - Toothache [Recovered/Resolved]
  - Pyrexia [Recovered/Resolved]
  - Anaemia [Recovered/Resolved]
  - Diplopia [Not Recovered/Not Resolved]
  - Chest pain [Recovered/Resolved]
  - Dehydration [Recovered/Resolved]
  - Mucous membrane disorder [Recovered/Resolved]
  - Malaise [Recovered/Resolved]
  - Dermatitis acneiform [Not Recovered/Not Resolved]
  - Vitreous floaters [Recovered/Resolved]
  - Febrile neutropenia [Recovered/Resolved]
  - Hypokalaemia [Recovered/Resolved]
  - Decreased appetite [Recovered/Resolved]
  - Dysgeusia [Recovered/Resolved]
  - Urinary tract disorder [Recovered/Resolved]
  - Abdominal pain upper [Recovered/Resolved]
  - Neutrophil count decreased [Recovered/Resolved]
  - Sudden hearing loss [Recovered/Resolved]
  - Skin fissures [Recovered/Resolved]
  - Compression fracture [Recovered/Resolved]
  - Headache [Recovered/Resolved]

NARRATIVE: CASE EVENT DATE: 20160806
